FAERS Safety Report 22331028 (Version 1)
Quarter: 2023Q2

REPORT INFORMATION
  Report Type: Spontaneous
  Country: IT (occurrence: IT)
  Receive Date: 20230517
  Receipt Date: 20230517
  Transmission Date: 20230722
  Serious: Yes (Other)
  Sender: FDA-Public Use
  Company Number: IT-STRIDES ARCOLAB LIMITED-2023SP007150

PATIENT
  Sex: Male

DRUGS (7)
  1. METHOTREXATE [Suspect]
     Active Substance: METHOTREXATE
     Indication: Autoinflammatory disease
     Dosage: UNK
     Route: 065
  2. MYCOPHENOLATE MOFETIL [Suspect]
     Active Substance: MYCOPHENOLATE MOFETIL
     Indication: Autoinflammatory disease
     Dosage: UNK
     Route: 065
  3. AZATHIOPRINE [Suspect]
     Active Substance: AZATHIOPRINE
     Indication: Autoinflammatory disease
     Dosage: UNK
     Route: 065
  4. PREDNISOLONE [Suspect]
     Active Substance: PREDNISOLONE
     Indication: Autoinflammatory disease
     Dosage: UNK (ORAL HIGH DOSE GLUCOCORTICOID (GC) TREATMENT (25 TO 50 MG/DAY) HAD BEEN ADMINISTERED CONTINUOUS
     Route: 048
  5. PREDNISOLONE [Suspect]
     Active Substance: PREDNISOLONE
     Dosage: 7.5 MILLIGRAM (PER DAY) (TAPERED)
     Route: 048
  6. PREDNISOLONE [Suspect]
     Active Substance: PREDNISOLONE
     Dosage: UNK (PER DAY) (TAPERED BELOW THE DOSAGE OF 7.5 MG/DAY)
     Route: 048
  7. HYDROXYCHLOROQUINE [Suspect]
     Active Substance: HYDROXYCHLOROQUINE
     Indication: Autoinflammatory disease
     Dosage: UNK
     Route: 065

REACTIONS (8)
  - Acute myocardial infarction [Unknown]
  - Adrenal insufficiency [Unknown]
  - Metabolic syndrome [Unknown]
  - Spinal fracture [Unknown]
  - Withdrawal syndrome [Unknown]
  - Osteoporosis [Unknown]
  - Drug ineffective for unapproved indication [Unknown]
  - Disease risk factor [Unknown]
